FAERS Safety Report 19276546 (Version 1)
Quarter: 2021Q2

REPORT INFORMATION
  Report Type: Spontaneous
  Country: US (occurrence: US)
  Receive Date: 20210519
  Receipt Date: 20210519
  Transmission Date: 20210717
  Serious: Yes (Death, Other)
  Sender: FDA-Public Use
  Company Number: US-INCYTE CORPORATION-2021IN004459

PATIENT

DRUGS (1)
  1. JAKAFI [Suspect]
     Active Substance: RUXOLITINIB
     Indication: POLYCYTHAEMIA VERA
     Dosage: UNK
     Route: 048

REACTIONS (3)
  - Myelofibrosis [Not Recovered/Not Resolved]
  - Disease progression [Not Recovered/Not Resolved]
  - Post transplant lymphoproliferative disorder [Fatal]
